FAERS Safety Report 20363018 (Version 7)
Quarter: 2023Q2

REPORT INFORMATION
  Report Type: Report from Study
  Country: DE (occurrence: DE)
  Receive Date: 20220121
  Receipt Date: 20230629
  Transmission Date: 20230721
  Serious: Yes (Life-Threatening, Hospitalization, Other)
  Sender: FDA-Public Use
  Company Number: DE-SA-SAC20211230001248

PATIENT
  Age: 69 Year
  Sex: Male
  Weight: 78 kg

DRUGS (58)
  1. DEXAMETHASONE [Suspect]
     Active Substance: DEXAMETHASONE
     Indication: Plasma cell myeloma refractory
     Dosage: 20 MG, D1, D2, D8, D9, D15
     Route: 065
     Dates: start: 20211122, end: 20211130
  2. DEXAMETHASONE [Suspect]
     Active Substance: DEXAMETHASONE
     Dosage: 20 MG, OTHER, D1, D2, D8, D9
     Route: 065
     Dates: start: 20220614, end: 20220622
  3. DEXAMETHASONE [Suspect]
     Active Substance: DEXAMETHASONE
     Dosage: 20 MG, OTHER, D1, D2, D8, D9
     Route: 065
     Dates: start: 20220222, end: 20220302
  4. DEXAMETHASONE [Suspect]
     Active Substance: DEXAMETHASONE
     Dosage: 20 MG, OTHER, D1, D2, D8, D9
     Route: 065
     Dates: start: 20220809, end: 20220817
  5. DEXAMETHASONE [Suspect]
     Active Substance: DEXAMETHASONE
     Dosage: 20 MG (D8, D9, D15, D16, D22)
     Route: 065
     Dates: start: 20220104, end: 20220118
  6. DEXAMETHASONE [Suspect]
     Active Substance: DEXAMETHASONE
     Dosage: 20 MG, OTHER, D1, D2, D8, D9
     Route: 065
     Dates: start: 20220517, end: 20220525
  7. DEXAMETHASONE [Suspect]
     Active Substance: DEXAMETHASONE
     Dosage: 20 MG, OTHER, D1, D2, D8, D9
     Route: 065
     Dates: start: 20220322, end: 20220330
  8. DEXAMETHASONE [Suspect]
     Active Substance: DEXAMETHASONE
     Dosage: 20 MG, OTHER, D1, D2
     Route: 065
     Dates: start: 20220906, end: 20220907
  9. DEXAMETHASONE [Suspect]
     Active Substance: DEXAMETHASONE
     Dosage: 20 MG, OTHER, D1, D2, D8, D9
     Route: 065
     Dates: start: 20220125, end: 20220205
  10. DEXAMETHASONE [Suspect]
     Active Substance: DEXAMETHASONE
     Dosage: 20 MG, OTHER, D1, D2, D8, D9
     Route: 065
     Dates: start: 20220712, end: 20220720
  11. DEXAMETHASONE [Suspect]
     Active Substance: DEXAMETHASONE
     Dosage: 20 MG, OTHER, D1, D2, D8, D9
     Route: 065
     Dates: start: 20211220, end: 20220105
  12. DEXAMETHASONE [Suspect]
     Active Substance: DEXAMETHASONE
     Dosage: 20 MG, OTHER, D1, D2, D8, D9
     Route: 065
     Dates: start: 20220419, end: 20220427
  13. ISATUXIMAB [Suspect]
     Active Substance: ISATUXIMAB
     Indication: Plasma cell myeloma refractory
     Dosage: UNK
     Route: 065
  14. ISATUXIMAB [Suspect]
     Active Substance: ISATUXIMAB
     Dosage: 680 MG, QW
     Route: 042
     Dates: start: 20211122, end: 20211213
  15. ISATUXIMAB [Suspect]
     Active Substance: ISATUXIMAB
     Dosage: 680 MG, OTHER
     Route: 042
     Dates: start: 20220712, end: 20220712
  16. ISATUXIMAB [Suspect]
     Active Substance: ISATUXIMAB
     Dosage: 680 MG, OTHER
     Route: 042
     Dates: start: 20220614, end: 20220614
  17. ISATUXIMAB [Suspect]
     Active Substance: ISATUXIMAB
     Dosage: 680 MG, OTHER
     Route: 042
     Dates: start: 20220906, end: 20220906
  18. ISATUXIMAB [Suspect]
     Active Substance: ISATUXIMAB
     Dosage: 680 MG, OTHER
     Route: 042
     Dates: start: 20220517, end: 20220517
  19. ISATUXIMAB [Suspect]
     Active Substance: ISATUXIMAB
     Dosage: 680 MG, OTHER
     Route: 042
     Dates: start: 20220419, end: 20220419
  20. ISATUXIMAB [Suspect]
     Active Substance: ISATUXIMAB
     Dosage: 680 MG, OTHER
     Route: 042
     Dates: start: 20220322, end: 20220322
  21. ISATUXIMAB [Suspect]
     Active Substance: ISATUXIMAB
     Dosage: 680 MG, OTHER
     Route: 042
     Dates: start: 20220222, end: 20220222
  22. ISATUXIMAB [Suspect]
     Active Substance: ISATUXIMAB
     Dosage: 680 MG, OTHER
     Route: 042
     Dates: start: 20211220, end: 20211220
  23. ISATUXIMAB [Suspect]
     Active Substance: ISATUXIMAB
     Dosage: 680 MG, OTHER
     Route: 042
     Dates: start: 20220809, end: 20220809
  24. ISATUXIMAB [Suspect]
     Active Substance: ISATUXIMAB
     Dosage: 680 MG, OTHER
     Route: 042
     Dates: start: 20220111, end: 20220111
  25. ISATUXIMAB [Suspect]
     Active Substance: ISATUXIMAB
     Dosage: 680 MG, OTHER
     Route: 042
     Dates: start: 20220125, end: 20220125
  26. POMALIDOMIDE [Suspect]
     Active Substance: POMALIDOMIDE
     Indication: Product used for unknown indication
     Route: 065
  27. CARFILZOMIB [Suspect]
     Active Substance: CARFILZOMIB
     Indication: Product used for unknown indication
     Dosage: UNK
     Route: 065
  28. CARFILZOMIB [Suspect]
     Active Substance: CARFILZOMIB
     Dosage: 74 MG, OTHER, D8, D9, D15, D16
     Route: 065
     Dates: start: 20211129, end: 20211130
  29. CARFILZOMIB [Suspect]
     Active Substance: CARFILZOMIB
     Dosage: 27 MG, OTHER
     Route: 065
     Dates: start: 20211122, end: 20211123
  30. CARFILZOMIB [Suspect]
     Active Substance: CARFILZOMIB
     Dosage: 74 MG, OTHER, D1, D2, D8, D9
     Route: 065
     Dates: start: 20211220, end: 20221005
  31. CARFILZOMIB [Suspect]
     Active Substance: CARFILZOMIB
     Dosage: 74 MG, OTHER, D1, D2, D8, D9
     Route: 065
     Dates: start: 20220614, end: 20220622
  32. CARFILZOMIB [Suspect]
     Active Substance: CARFILZOMIB
     Dosage: 74 MG, OTHER, D1, D2
     Route: 065
     Dates: start: 20220906, end: 20220907
  33. CARFILZOMIB [Suspect]
     Active Substance: CARFILZOMIB
     Dosage: 74 MG, OTHER, D1, D2, D8, D9
     Route: 065
     Dates: start: 20220517, end: 20220525
  34. CARFILZOMIB [Suspect]
     Active Substance: CARFILZOMIB
     Dosage: 74 MG, OTHER, D1, D2, D8, D9
     Route: 065
     Dates: start: 20220222, end: 20220302
  35. CARFILZOMIB [Suspect]
     Active Substance: CARFILZOMIB
     Dosage: 74 MG, OTHER, D1, D2, D8, D9
     Route: 065
     Dates: start: 20220322, end: 20220330
  36. CARFILZOMIB [Suspect]
     Active Substance: CARFILZOMIB
     Dosage: 74 MG, OTHER, D1, D2, D8, D9
     Route: 065
     Dates: start: 20220125, end: 20220202
  37. CARFILZOMIB [Suspect]
     Active Substance: CARFILZOMIB
     Dosage: 74 MG, OTHER, D1, D2, D8, D9
     Route: 065
     Dates: start: 20220809, end: 20220817
  38. CARFILZOMIB [Suspect]
     Active Substance: CARFILZOMIB
     Dosage: 74 MG, OTHER, D1, D2, D8, D9
     Route: 065
     Dates: start: 20220419, end: 20220427
  39. CARFILZOMIB [Suspect]
     Active Substance: CARFILZOMIB
     Dosage: 74 MG (D1, D2, D8, D9)
     Route: 065
     Dates: start: 20220104, end: 20220112
  40. CARFILZOMIB [Suspect]
     Active Substance: CARFILZOMIB
     Dosage: 74 MG (D1, D2, D8, D9)
     Route: 065
     Dates: start: 20220712, end: 20220720
  41. HYDROMORPHONE HYDROCHLORIDE [Concomitant]
     Active Substance: HYDROMORPHONE HYDROCHLORIDE
     Indication: Bone pain
     Dosage: UNK
     Dates: start: 20170815
  42. PANTOPRAZOLE [Concomitant]
     Active Substance: PANTOPRAZOLE
     Indication: Gastritis prophylaxis
     Dosage: UNK
     Dates: start: 20201026
  43. TAMSULOSIN [Concomitant]
     Active Substance: TAMSULOSIN
     Indication: Benign prostatic hyperplasia
     Dosage: UNK
     Dates: start: 2005
  44. HUMAN RED BLOOD CELL [Concomitant]
     Active Substance: HUMAN RED BLOOD CELL
     Indication: Anaemia
     Dosage: UNK
     Dates: start: 20210927
  45. ACYCLOVIR [Concomitant]
     Active Substance: ACYCLOVIR
     Indication: Infection prophylaxis
     Dosage: UNK
     Dates: start: 20170911
  46. METAMIZOLE [Concomitant]
     Active Substance: METAMIZOLE
     Indication: Bone pain
     Dosage: UNK
     Dates: start: 20170815
  47. MONTELUKAST [Concomitant]
     Active Substance: MONTELUKAST SODIUM
     Indication: Rhinitis allergic
     Dosage: UNK
     Dates: start: 20211025
  48. PREGABALIN [Concomitant]
     Active Substance: PREGABALIN
     Indication: Bone pain
     Dosage: UNK
     Dates: start: 20170911
  49. PAMIDRONATE [Concomitant]
     Active Substance: PAMIDRONATE DISODIUM
     Indication: Osteolysis
     Dosage: UNK
     Dates: start: 20170815
  50. CLEMASTINE [Concomitant]
     Active Substance: CLEMASTINE
     Indication: Allergy prophylaxis
     Dosage: UNK
  51. PLATELETS [Concomitant]
     Active Substance: HUMAN PLATELET, ALLOGENIC
     Indication: Thrombocytopenia
     Dosage: UNK
     Dates: start: 20210601
  52. SULFAMETHOXAZOLE\TRIMETHOPRIM [Concomitant]
     Active Substance: SULFAMETHOXAZOLE\TRIMETHOPRIM
     Indication: Infection prophylaxis
     Dosage: UNK
     Dates: start: 20170911
  53. POLYETHYLENE GLYCOLS [Concomitant]
     Active Substance: POLYETHYLENE GLYCOLS
     Indication: Constipation
     Dosage: UNK UNK, PRN, AS REQUIRED
     Dates: start: 2017
  54. ACETAMINOPHEN [Concomitant]
     Active Substance: ACETAMINOPHEN
     Indication: Pyrexia
     Dosage: UNK
  55. ALIZAPRIDE [Concomitant]
     Active Substance: ALIZAPRIDE
     Indication: Nausea
     Dosage: UNK
     Dates: start: 20211102
  56. FOLIC ACID [Concomitant]
     Active Substance: FOLIC ACID
     Indication: Product used for unknown indication
     Dosage: UNK
     Dates: start: 20221006
  57. POTASSIUM CHLORIDE [Concomitant]
     Active Substance: POTASSIUM CHLORIDE
     Indication: Hypokalaemia
     Dosage: UNK
  58. CYANOCOBALAMIN [Concomitant]
     Active Substance: CYANOCOBALAMIN
     Indication: Product used for unknown indication
     Dosage: UNK
     Dates: start: 20221006

REACTIONS (17)
  - Neutropenia [Recovered/Resolved]
  - Febrile neutropenia [Recovered/Resolved]
  - Febrile neutropenia [Recovered/Resolved]
  - Neutropenia [Recovered/Resolved]
  - Haematochezia [Recovered/Resolved]
  - Plasma cell leukaemia [Not Recovered/Not Resolved]
  - Neutropenia [Recovered/Resolved]
  - Neutropenia [Not Recovered/Not Resolved]
  - Haematochezia [Recovered/Resolved]
  - Cough [Recovered/Resolved]
  - Pulpitis dental [Recovered/Resolved]
  - General physical health deterioration [Recovered/Resolved]
  - Oedema mucosal [Recovered/Resolved]
  - Vomiting [Recovered/Resolved]
  - Petechiae [Recovered/Resolved]
  - Tachycardia [Recovered/Resolved]
  - Heart rate increased [Recovered/Resolved]

NARRATIVE: CASE EVENT DATE: 20211102
